FAERS Safety Report 9424281 (Version 3)
Quarter: 2013Q3

REPORT INFORMATION
  Report Type: Spontaneous
  Country: DE (occurrence: DE)
  Receive Date: 20130729
  Receipt Date: 20130926
  Transmission Date: 20140515
  Serious: Yes (Hospitalization)
  Sender: FDA-Public Use
  Company Number: DE-JNJFOC-20130711528

PATIENT
  Age: 43 Year
  Sex: Female

DRUGS (4)
  1. XEPLION [Suspect]
     Indication: SCHIZOPHRENIA SIMPLE
     Route: 030
     Dates: end: 20130610
  2. XEPLION [Suspect]
     Indication: SCHIZOPHRENIA SIMPLE
     Route: 030
     Dates: start: 20130318, end: 20130604
  3. TAVOR [Concomitant]
     Indication: PRODUCT USED FOR UNKNOWN INDICATION
     Route: 048
  4. ZOPICLONE [Concomitant]
     Indication: SLEEP DISORDER
     Route: 048

REACTIONS (2)
  - Suicide attempt [Not Recovered/Not Resolved]
  - Dyskinesia [Not Recovered/Not Resolved]
